FAERS Safety Report 6145305-1 (Version None)
Quarter: 2009Q2

REPORT INFORMATION
  Report Type: 
  Country: None (occurrence: None)
  Receive Date: 20090406
  Receipt Date: 20090325
  Transmission Date: 20091009
  Serious: Yes (Other)
  Sender: FDA-Public Use
  Company Number: US-JNJCH-2009009246

PATIENT
  Age: 78 Year
  Sex: Female
  Weight: 65.8 kg

DRUGS (4)
  1. ASPIRIN [Suspect]
     Indication: DRUG USE FOR UNKNOWN INDICATION
     Dosage: TEXT:UNSPECIFIED
     Route: 065
  2. LEVOTHYROXINE SODIUM [Concomitant]
     Indication: HYPOTHYROIDISM
     Dosage: TEXT:0.05 MG, 1 TABLET ONCE DAILY
     Route: 065
  3. MULTI-VITAMINS [Concomitant]
     Indication: VITAMIN SUPPLEMENTATION
     Dosage: TEXT:ONE TABLET DAILY
     Route: 065
  4. VITAMIN B1 TAB [Concomitant]
     Indication: VITAMIN SUPPLEMENTATION
     Dosage: TEXT:ONE TABLET DAILY
     Route: 065

REACTIONS (2)
  - GASTROINTESTINAL DISORDER [None]
  - GASTROINTESTINAL HAEMORRHAGE [None]
